FAERS Safety Report 20165382 (Version 1)
Quarter: 2021Q4

REPORT INFORMATION
  Report Type: Spontaneous
  Country: BR (occurrence: None)
  Receive Date: 20211209
  Receipt Date: 20211209
  Transmission Date: 20220303
  Serious: Yes (Hospitalization, Other)
  Sender: FDA-Public Use
  Company Number: BR-ROCHE-2962386

PATIENT
  Sex: Male

DRUGS (1)
  1. RIVOTRIL [Suspect]
     Active Substance: CLONAZEPAM
     Indication: Panic disorder
     Dosage: OVER 30 YEARS AGO. SUBSEQUENT DOSE IN //1992 (1 TABLET OF 2 MG AT NIGHT), //2000 (TWO BOXES OF RIVOT
     Route: 048

REACTIONS (13)
  - Drug dependence [Unknown]
  - Intentional overdose [Unknown]
  - Obesity [Recovered/Resolved]
  - Varicose vein [Not Recovered/Not Resolved]
  - Osteoarthritis [Unknown]
  - Alcohol interaction [Recovered/Resolved]
  - Intentional product use issue [Unknown]
  - Incorrect product administration duration [Unknown]
  - Product administration interrupted [Unknown]
  - Depression [Not Recovered/Not Resolved]
  - Weaning failure [Recovered/Resolved]
  - Hypertension [Recovered/Resolved]
  - Withdrawal syndrome [Recovered/Resolved]
